FAERS Safety Report 7915379-3 (Version None)
Quarter: 2011Q4

REPORT INFORMATION
  Report Type: 
  Country: None (occurrence: None)
  Receive Date: 20111115
  Receipt Date: 20111110
  Transmission Date: 20120403
  Serious: Yes (Death, Other)
  Sender: FDA-Public Use
  Company Number: PHEH2011US008823

PATIENT
  Sex: Female
  Weight: 50 kg

DRUGS (1)
  1. RECLAST [Suspect]
     Dosage: 5 MG, ONCE YEARLY
     Route: 042

REACTIONS (3)
  - DEATH [None]
  - FALL [None]
  - HEAD INJURY [None]
